FAERS Safety Report 11053839 (Version 2)
Quarter: 2015Q4

REPORT INFORMATION
  Report Type: Report from Study
  Country: US (occurrence: US)
  Receive Date: 20150421
  Receipt Date: 20151023
  Transmission Date: 20160304
  Serious: Yes (Hospitalization, Other)
  Sender: FDA-Public Use
  Company Number: US-PURDUE-USA-2015-0122732

PATIENT
  Age: 28 Year
  Sex: Male

DRUGS (3)
  1. BTDS PATCH [Suspect]
     Active Substance: BUPRENORPHINE
     Dosage: 10 MCG/HR, WEEKLY
     Route: 062
     Dates: start: 2013
  2. BTDS PATCH [Suspect]
     Active Substance: BUPRENORPHINE
     Indication: HERNIA
     Dosage: 15 MCG/HR, WEEKLY
     Route: 062
  3. OXYCODONE HCL TABLETS (RHODES 91-490) [Suspect]
     Active Substance: OXYCODONE HYDROCHLORIDE
     Indication: GASTROINTESTINAL PAIN
     Dosage: 10 MG, TID
     Route: 048

REACTIONS (5)
  - Abdominal pain upper [Not Recovered/Not Resolved]
  - Decreased appetite [Unknown]
  - Abnormal loss of weight [Unknown]
  - Drug effect decreased [Unknown]
  - Hernia [Unknown]

NARRATIVE: CASE EVENT DATE: 201503
